APPROVED DRUG PRODUCT: SIVEXTRO
Active Ingredient: TEDIZOLID PHOSPHATE
Strength: 200MG/VIAL
Dosage Form/Route: POWDER;INTRAVENOUS
Application: N205436 | Product #001
Applicant: CUBIST PHARMACEUTICALS LLC
Approved: Jun 20, 2014 | RLD: Yes | RS: Yes | Type: RX

PATENTS:
Patent 8426389 | Expires: Dec 31, 2030
Patent 8420676 | Expires: Feb 23, 2028
Patent 7816379 | Expires: Jun 20, 2028
Patent 9624250 | Expires: Feb 3, 2030
Patent 9988406 | Expires: Feb 3, 2030
Patent 10442829 | Expires: Feb 3, 2030
Patent 10065947 | Expires: Feb 3, 2030

EXCLUSIVITY:
Code: NPP | Date: Apr 4, 2028